FAERS Safety Report 24062750 (Version 4)
Quarter: 2025Q1

REPORT INFORMATION
  Report Type: Report from Study
  Country: CA (occurrence: CA)
  Receive Date: 20240708
  Receipt Date: 20250218
  Transmission Date: 20250408
  Serious: Yes (Hospitalization)
  Sender: ABBVIE
  Company Number: CA-ABBVIE-5813219

PATIENT
  Age: 84 Year
  Sex: Female

DRUGS (11)
  1. VENETOCLAX [Suspect]
     Active Substance: VENETOCLAX
     Indication: Acute myeloid leukaemia
     Route: 048
     Dates: start: 20240521, end: 20240613
  2. VENETOCLAX [Suspect]
     Active Substance: VENETOCLAX
     Indication: Acute myeloid leukaemia
     Route: 048
     Dates: start: 20240729, end: 20240802
  3. VENETOCLAX [Suspect]
     Active Substance: VENETOCLAX
     Indication: Acute myeloid leukaemia
     Route: 048
  4. VENETOCLAX [Suspect]
     Active Substance: VENETOCLAX
     Indication: Acute myeloid leukaemia
     Route: 048
     Dates: start: 20240826, end: 20240903
  5. VENETOCLAX [Suspect]
     Active Substance: VENETOCLAX
     Indication: Acute myeloid leukaemia
     Route: 048
     Dates: start: 20240923, end: 20241021
  6. Covid-19 vaccine [Concomitant]
     Indication: COVID-19 immunisation
     Route: 030
  7. Covid-19 vaccine [Concomitant]
     Indication: COVID-19 immunisation
     Route: 030
  8. Covid-19 vaccine [Concomitant]
     Indication: COVID-19 immunisation
     Route: 030
  9. Covid-19 vaccine [Concomitant]
     Indication: COVID-19 immunisation
     Route: 030
  10. Covid-19 vaccine [Concomitant]
     Indication: COVID-19 immunisation
     Route: 030
  11. TOBRAMYCIN SULFATE [Concomitant]
     Active Substance: TOBRAMYCIN SULFATE
     Indication: Febrile neutropenia
     Route: 042
     Dates: start: 20240617, end: 20240617

REACTIONS (1)
  - Febrile neutropenia [Recovered/Resolved]

NARRATIVE: CASE EVENT DATE: 20240617
